FAERS Safety Report 25513871 (Version 1)
Quarter: 2025Q3

REPORT INFORMATION
  Report Type: Spontaneous
  Country: US (occurrence: US)
  Receive Date: 20250703
  Receipt Date: 20250703
  Transmission Date: 20251021
  Serious: No
  Sender: SANOFI AVENTIS
  Company Number: US-SA-2025SA187851

PATIENT
  Sex: Female
  Weight: 81.82 kg

DRUGS (13)
  1. DUPIXENT [Suspect]
     Active Substance: DUPILUMAB
     Indication: Neurodermatitis
     Route: 058
  2. YUVAFEM [Concomitant]
     Active Substance: ESTRADIOL HEMIHYDRATE
  3. BUPROPION [Concomitant]
     Active Substance: BUPROPION
  4. ATORVASTATIN CALCIUM [Concomitant]
     Active Substance: ATORVASTATIN CALCIUM
  5. OLMESARTAN MEDOXOMIL [Concomitant]
     Active Substance: OLMESARTAN MEDOXOMIL
  6. METOPROLOL SUCCINATE [Concomitant]
     Active Substance: METOPROLOL SUCCINATE
  7. TACROLIMUS [Concomitant]
     Active Substance: TACROLIMUS
  8. HYDROCHLOROTHIAZIDE [Concomitant]
     Active Substance: HYDROCHLOROTHIAZIDE
  9. BENZONATATE [Concomitant]
     Active Substance: BENZONATATE
  10. ALBUTEROL SULFATE [Concomitant]
     Active Substance: ALBUTEROL SULFATE
  11. TIZANIDINE [Concomitant]
     Active Substance: TIZANIDINE
  12. DIAZEPAM [Concomitant]
     Active Substance: DIAZEPAM
  13. CELECOXIB [Concomitant]
     Active Substance: CELECOXIB

REACTIONS (1)
  - Injection site pain [Unknown]
